FAERS Safety Report 11753386 (Version 4)
Quarter: 2016Q4

REPORT INFORMATION
  Report Type: Report from Study
  Country: CA (occurrence: CA)
  Receive Date: 20151119
  Receipt Date: 20161101
  Transmission Date: 20170206
  Serious: Yes (Hospitalization, Other)
  Sender: FDA-Public Use
  Company Number: CA-ROCHE-1655201

PATIENT
  Age: 67 Year
  Sex: Male

DRUGS (9)
  1. RITUXAN [Suspect]
     Active Substance: RITUXIMAB
     Indication: IMMUNOGLOBULIN G4 RELATED DISEASE
     Route: 042
     Dates: start: 20150519, end: 20160909
  2. RITUXAN [Suspect]
     Active Substance: RITUXIMAB
     Route: 042
     Dates: start: 20151026
  3. CRESTOR [Concomitant]
     Active Substance: ROSUVASTATIN CALCIUM
  4. BENADRYL [Concomitant]
     Active Substance: DIPHENHYDRAMINE HYDROCHLORIDE
     Indication: PREMEDICATION
     Route: 048
     Dates: start: 20150519
  5. METOPROLOL. [Concomitant]
     Active Substance: METOPROLOL
  6. PREDNISONE. [Concomitant]
     Active Substance: PREDNISONE
     Route: 048
     Dates: start: 20150519
  7. METFORMIN [Concomitant]
     Active Substance: METFORMIN HYDROCHLORIDE
  8. TYLENOL [Concomitant]
     Active Substance: ACETAMINOPHEN
     Indication: PREMEDICATION
     Route: 048
     Dates: start: 20150519
  9. FINASTERIDE. [Concomitant]
     Active Substance: FINASTERIDE

REACTIONS (24)
  - Asthenia [Unknown]
  - Malaise [Unknown]
  - Incorrect drug administration rate [Unknown]
  - Erythema [Unknown]
  - Pleural effusion [Unknown]
  - Headache [Unknown]
  - Haematocrit decreased [Unknown]
  - Granulocyte count increased [Unknown]
  - Vomiting [Recovered/Resolved]
  - Mean cell haemoglobin decreased [Unknown]
  - Blood albumin decreased [Unknown]
  - Urticaria [Unknown]
  - Neutrophil count increased [Unknown]
  - Ascites [Unknown]
  - Monocyte count increased [Unknown]
  - Protein total decreased [Unknown]
  - Infusion related reaction [Recovered/Resolved]
  - Rosai-Dorfman syndrome [Not Recovered/Not Resolved]
  - Red cell distribution width increased [Unknown]
  - Pulmonary oedema [Not Recovered/Not Resolved]
  - White blood cell count increased [Unknown]
  - Haemoglobin decreased [Unknown]
  - Platelet count increased [Unknown]
  - Nausea [Recovered/Resolved]

NARRATIVE: CASE EVENT DATE: 20151110
